FAERS Safety Report 18501624 (Version 3)
Quarter: 2021Q1

REPORT INFORMATION
  Report Type: Spontaneous
  Country: US (occurrence: US)
  Receive Date: 20201113
  Receipt Date: 20210208
  Transmission Date: 20210419
  Serious: Yes (Other)
  Sender: FDA-Public Use
  Company Number: US-GLAXOSMITHKLINE-US2020AMR224640

PATIENT
  Age: 61 Year
  Sex: Female

DRUGS (3)
  1. ZEJULA [Suspect]
     Active Substance: NIRAPARIB
     Dosage: 200 MG, QD
     Dates: end: 202101
  2. ZEJULA [Suspect]
     Active Substance: NIRAPARIB
     Dosage: 300 MG, QD
     Dates: start: 20201103, end: 20201109
  3. ZEJULA [Suspect]
     Active Substance: NIRAPARIB
     Indication: OVARIAN CANCER
     Dosage: 200 MG, QD QPM WITH FOOD
     Dates: start: 20201013

REACTIONS (5)
  - Haemoglobin decreased [Unknown]
  - Pulmonary embolism [Unknown]
  - Platelet count decreased [Unknown]
  - COVID-19 [Unknown]
  - Quarantine [Not Recovered/Not Resolved]

NARRATIVE: CASE EVENT DATE: 202101
